FAERS Safety Report 7579605-5 (Version None)
Quarter: 2011Q2

REPORT INFORMATION
  Report Type: 
  Country: None (occurrence: None)
  Receive Date: 20110629
  Receipt Date: 20101006
  Transmission Date: 20111010
  Serious: No
  Sender: FDA-Public Use
  Company Number: US-BAYER-201038971NA

PATIENT
  Sex: Female

DRUGS (1)
  1. MIRENA [Suspect]
     Indication: CONTRACEPTION
     Dosage: 20 ?G/D, CONT
     Route: 015
     Dates: start: 20100625, end: 20100913

REACTIONS (6)
  - MIGRAINE [None]
  - WEIGHT INCREASED [None]
  - MENSTRUATION IRREGULAR [None]
  - ABDOMINAL PAIN [None]
  - HYPOMENORRHOEA [None]
  - DYSPAREUNIA [None]
